FAERS Safety Report 7927325-7 (Version None)
Quarter: 2011Q4

REPORT INFORMATION
  Report Type: 
  Country: None (occurrence: None)
  Receive Date: 20111118
  Receipt Date: 20111110
  Transmission Date: 20120403
  Serious: Yes (Other)
  Sender: FDA-Public Use
  Company Number: PHHY2011NL78016

PATIENT
  Sex: Female
  Weight: 75 kg

DRUGS (10)
  1. OMEPRAZOLE [Concomitant]
     Dosage: UNK
  2. LOSARTAN [Concomitant]
  3. ZOMETA [Suspect]
     Dosage: 4 MG/ 5 ML
     Dates: start: 20110902, end: 20110901
  4. FERROFUMARAT [Concomitant]
  5. ZOMETA [Suspect]
     Indication: BREAST CANCER METASTATIC
     Dosage: 4 MG, UNK
     Route: 042
     Dates: start: 20110701
  6. GLICLAZIDE [Concomitant]
  7. METOPROLOL SUCCINATE [Concomitant]
  8. ZOMETA [Suspect]
     Dosage: 4 MG/ 5 ML
     Dates: start: 20110804
  9. AMITRIPTYLINE HCL [Concomitant]
  10. ZOPICLONE [Concomitant]

REACTIONS (5)
  - NEOPLASM PROGRESSION [None]
  - ASCITES [None]
  - NEOPLASM MALIGNANT [None]
  - FATIGUE [None]
  - NAUSEA [None]
